FAERS Safety Report 13285631 (Version 1)
Quarter: 2017Q1

REPORT INFORMATION
  Report Type: Spontaneous
  Country: US (occurrence: US)
  Receive Date: 20170301
  Receipt Date: 20170301
  Transmission Date: 20170428
  Serious: No
  Sender: FDA-Public Use
  Company Number: None

PATIENT
  Age: 47 Year
  Sex: Female

DRUGS (1)
  1. EPCLUSA [Suspect]
     Active Substance: SOFOSBUVIR\VELPATASVIR
     Indication: CHRONIC HEPATITIS C
     Dosage: 1 TABLET EVERY MORNING BY MOUTH
     Route: 048
     Dates: start: 20161118

REACTIONS (2)
  - Myalgia [None]
  - Alopecia [None]

NARRATIVE: CASE EVENT DATE: 20170227
